FAERS Safety Report 8245136-2 (Version None)
Quarter: 2012Q1

REPORT INFORMATION
  Report Type: 
  Country: None (occurrence: None)
  Receive Date: 20120329
  Receipt Date: 20120322
  Transmission Date: 20120608
  Serious: Yes (Other)
  Sender: FDA-Public Use
  Company Number: BR-PFIZER INC-2012075539

PATIENT
  Age: 45 Year
  Sex: Male
  Weight: 82 kg

DRUGS (1)
  1. XALATAN [Suspect]
     Indication: GLAUCOMA
     Dosage: 3 UG, 1X/DAY (ONE DROP IN EACH EYE, ONCE DAILY)
     Route: 047
     Dates: start: 20110101, end: 20120201

REACTIONS (4)
  - HEADACHE [None]
  - RETCHING [None]
  - SENSATION OF FOREIGN BODY [None]
  - DYSPNOEA [None]
